FAERS Safety Report 26185022 (Version 1)
Quarter: 2025Q4

REPORT INFORMATION
  Report Type: Spontaneous
  Country: US (occurrence: US)
  Receive Date: 20251222
  Receipt Date: 20251222
  Transmission Date: 20260117
  Serious: Yes (Other)
  Sender: GLENMARK
  Company Number: US-MLMSERVICE-20251202-PI732834-00121-1

PATIENT
  Age: 22 Year
  Sex: Male

DRUGS (2)
  1. DILTIAZEM HYDROCHLORIDE [Suspect]
     Active Substance: DILTIAZEM HYDROCHLORIDE
     Indication: Atrial fibrillation
     Dosage: 20 MILLIGRAM
     Route: 042
  2. DILTIAZEM HYDROCHLORIDE [Suspect]
     Active Substance: DILTIAZEM HYDROCHLORIDE
     Dosage: 10 MILLIGRAM, (CONTINUOUS INFUSION OF 10 MG PER HOUR)
     Route: 065

REACTIONS (1)
  - Supraventricular tachycardia [Recovered/Resolved]
